FAERS Safety Report 5157968-8 (Version None)
Quarter: 2006Q4

REPORT INFORMATION
  Report Type: 
  Country: None (occurrence: None)
  Receive Date: 20061116
  Receipt Date: 20061103
  Transmission Date: 20070319
  Serious: Yes (Hospitalization, Other)
  Sender: FDA-Public Use
  Company Number: 2006123535

PATIENT
  Age: 56 Year
  Sex: Male
  Weight: 108.4097 kg

DRUGS (10)
  1. DOSTINEX [Suspect]
     Indication: PROLACTIN-PRODUCING PITUITARY TUMOUR
     Dosage: (1 MG, 2 IN 1WK)
     Dates: start: 20050131
  2. PRILOSEC [Concomitant]
  3. DARVOCET [Concomitant]
  4. DEPAKOTE [Concomitant]
  5. NEURONTIN [Concomitant]
  6. MAXAIR [Concomitant]
  7. MULTIVITAMIN [Concomitant]
  8. TYLENOL SINUS (PARACETAMOL, PSEUDOEPHEDRINE HYDROCHLORIDE) [Concomitant]
  9. LISINOPRIL W/HYDROCHLOROTHIAZIDE (HYDROCHLOROTHIAZIDE, LISINOPRIL) [Concomitant]
  10. ADVAIR DISKUS 100/50 [Concomitant]

REACTIONS (1)
  - COLITIS ISCHAEMIC [None]
